FAERS Safety Report 10136407 (Version 1)
Quarter: 2014Q2

REPORT INFORMATION
  Report Type: Spontaneous
  Country: US (occurrence: None)
  Receive Date: 20140428
  Receipt Date: 20140428
  Transmission Date: 20141212
  Serious: Yes (Death)
  Sender: FDA-Public Use
  Company Number: None

PATIENT
  Age: 94 Year
  Sex: Female

DRUGS (1)
  1. ADCIRCA [Suspect]
     Indication: PULMONARY ARTERIAL HYPERTENSION
     Route: 048
     Dates: start: 20140321, end: 20140324

REACTIONS (6)
  - Cardiac disorder [None]
  - Pain [None]
  - Tremor [None]
  - Cough [None]
  - Respiratory tract congestion [None]
  - Eye disorder [None]
